FAERS Safety Report 8146316-7 (Version None)
Quarter: 2012Q1

REPORT INFORMATION
  Report Type: 
  Country: None (occurrence: None)
  Receive Date: 20120217
  Receipt Date: 20120215
  Transmission Date: 20120608
  Serious: Yes (Other)
  Sender: FDA-Public Use
  Company Number: US-PFIZER INC-2012035369

PATIENT
  Sex: Male

DRUGS (2)
  1. NORVASC [Suspect]
     Dosage: UNK
  2. LYRICA [Suspect]
     Dosage: UNK

REACTIONS (4)
  - ROAD TRAFFIC ACCIDENT [None]
  - SPINAL FRACTURE [None]
  - FLUID RETENTION [None]
  - MUSCLE CONTRACTIONS INVOLUNTARY [None]
